FAERS Safety Report 13215268 (Version 1)
Quarter: 2017Q1

REPORT INFORMATION
  Report Type: Spontaneous
  Country: US (occurrence: US)
  Receive Date: 20170210
  Receipt Date: 20170210
  Transmission Date: 20170428
  Serious: No
  Sender: FDA-Public Use
  Company Number: US-ROCHE-1750321

PATIENT
  Age: 63 Year
  Sex: Female

DRUGS (1)
  1. XOLAIR [Suspect]
     Active Substance: OMALIZUMAB
     Indication: IDIOPATHIC URTICARIA
     Route: 058
     Dates: start: 20160324

REACTIONS (9)
  - Headache [Unknown]
  - Arthralgia [Unknown]
  - Vomiting [Unknown]
  - Chills [Unknown]
  - Pyrexia [Unknown]
  - Fatigue [Unknown]
  - Nasal congestion [Unknown]
  - Myalgia [Unknown]
  - Abdominal pain upper [Unknown]

NARRATIVE: CASE EVENT DATE: 20160324
